FAERS Safety Report 21774875 (Version 1)
Quarter: 2022Q4

REPORT INFORMATION
  Report Type: Spontaneous
  Country: US (occurrence: None)
  Receive Date: 20221224
  Receipt Date: 20221224
  Transmission Date: 20230113
  Serious: No
  Sender: FDA-Public Use
  Company Number: 2022A402874

PATIENT
  Age: 76 Year
  Sex: Male

DRUGS (1)
  1. PULMICORT FLEXHALER [Suspect]
     Active Substance: BUDESONIDE
     Dosage: UNKNOWN
     Route: 055

REACTIONS (8)
  - Respiratory disorder [Unknown]
  - Lower respiratory tract congestion [Unknown]
  - Hyperhidrosis [Unknown]
  - Somnolence [Unknown]
  - Allergy to animal [Unknown]
  - Asthma [Unknown]
  - Malaise [Unknown]
  - Product use issue [Unknown]
